FAERS Safety Report 26072976 (Version 2)
Quarter: 2025Q4

REPORT INFORMATION
  Report Type: Report from Study
  Country: JP (occurrence: JP)
  Receive Date: 20251121
  Receipt Date: 20251229
  Transmission Date: 20260117
  Serious: Yes (Other)
  Sender: ROCHE
  Company Number: JP-CHUGAI-2024025038

PATIENT
  Age: 71 Year
  Sex: Male
  Weight: 48.8 kg

DRUGS (6)
  1. ZELBORAF [Suspect]
     Active Substance: VEMURAFENIB
     Indication: Erdheim-Chester disease
     Route: 048
     Dates: start: 20240718, end: 20240801
  2. ZELBORAF [Suspect]
     Active Substance: VEMURAFENIB
     Route: 048
     Dates: start: 20240822
  3. PITAVASTATIN CALCIUM [Concomitant]
     Active Substance: PITAVASTATIN CALCIUM
     Route: 048
  4. MINIRIN [Concomitant]
     Active Substance: DESMOPRESSIN ACETATE
     Route: 048
  5. OLOPATADINE [OLOPATADINE HYDROCHLORIDE] [Concomitant]
     Route: 048
     Dates: start: 20240822
  6. BETAMETHASONE BUTYRATE PROPIONATE [Concomitant]
     Active Substance: BETAMETHASONE BUTYRATE PROPIONATE
     Route: 003
     Dates: start: 20240806, end: 20240906

REACTIONS (7)
  - Off label use [Unknown]
  - Renal disorder [Not Recovered/Not Resolved]
  - Toxic skin eruption [Recovered/Resolved]
  - Anaemia [Recovering/Resolving]
  - Neutrophil count decreased [Recovered/Resolved]
  - Lymphocyte count decreased [Recovered/Resolved]
  - Hepatic function abnormal [Recovered/Resolved]

NARRATIVE: CASE EVENT DATE: 20240725
